FAERS Safety Report 24328529 (Version 1)
Quarter: 2024Q3

REPORT INFORMATION
  Report Type: Spontaneous
  Country: US (occurrence: US)
  Receive Date: 20240917
  Receipt Date: 20240917
  Transmission Date: 20241017
  Serious: No
  Sender: DR REDDYS
  Company Number: US-DRL-USA-SPO/USA/24/0013272

PATIENT
  Age: 25 Year
  Sex: Male
  Weight: 107 kg

DRUGS (1)
  1. PANTOPRAZOLE [Suspect]
     Active Substance: PANTOPRAZOLE
     Indication: Gastrooesophageal reflux disease
     Route: 048
     Dates: start: 20230701, end: 20240829

REACTIONS (2)
  - Heart rate increased [Recovered/Resolved]
  - Pharyngeal swelling [Recovered/Resolved]
